FAERS Safety Report 18603791 (Version 2)
Quarter: 2020Q4

REPORT INFORMATION
  Report Type: Spontaneous
  Country: BE (occurrence: BE)
  Receive Date: 20201211
  Receipt Date: 20201229
  Transmission Date: 20210114
  Serious: Yes (Hospitalization, Other)
  Sender: FDA-Public Use
  Company Number: BE-LUPIN PHARMACEUTICALS INC.-2020-10026

PATIENT
  Age: 12 Year
  Sex: Male

DRUGS (8)
  1. ARIPIPRAZOLE. [Suspect]
     Active Substance: ARIPIPRAZOLE
     Dosage: 15 MILLIGRAM
     Route: 065
  2. PIPAMPERONE [Concomitant]
     Active Substance: PIPAMPERONE
     Indication: AUTISM SPECTRUM DISORDER
     Dosage: UNK
     Route: 065
  3. RISPERIDONE. [Concomitant]
     Active Substance: RISPERIDONE
     Indication: AUTISM SPECTRUM DISORDER
     Dosage: UNK
     Route: 065
  4. METHYLPHENIDATE. [Concomitant]
     Active Substance: METHYLPHENIDATE
     Indication: ATTENTION DEFICIT HYPERACTIVITY DISORDER
     Dosage: UNK
     Route: 065
  5. QUETIAPINE FUMARATE. [Suspect]
     Active Substance: QUETIAPINE FUMARATE
     Dosage: 800 MILLIGRAM, QD
     Route: 065
  6. QUETIAPINE FUMARATE. [Suspect]
     Active Substance: QUETIAPINE FUMARATE
     Dosage: UNK,GRADUALLY PHASING OUT
     Route: 065
  7. QUETIAPINE FUMARATE. [Suspect]
     Active Substance: QUETIAPINE FUMARATE
     Indication: ATTENTION DEFICIT HYPERACTIVITY DISORDER
     Dosage: 15 TITRATED UP ,EXTENDED-RELEASE
     Route: 065
  8. ARIPIPRAZOLE. [Suspect]
     Active Substance: ARIPIPRAZOLE
     Indication: AUTISM SPECTRUM DISORDER
     Dosage: UNK,PHASED OUT ARIPIPRAZOLE FROM 15 MG UNTIL COMPLETE DISCONTINUATION
     Route: 065

REACTIONS (6)
  - Withdrawal syndrome [Recovering/Resolving]
  - Loss of personal independence in daily activities [Recovering/Resolving]
  - Choreoathetosis [Recovering/Resolving]
  - Agitation [Recovering/Resolving]
  - Tardive dyskinesia [Recovering/Resolving]
  - Anxiety [Recovering/Resolving]
